FAERS Safety Report 13279216 (Version 1)
Quarter: 2017Q1

REPORT INFORMATION
  Report Type: Report from Study
  Country: US (occurrence: US)
  Receive Date: 20170228
  Receipt Date: 20170228
  Transmission Date: 20170428
  Serious: Yes (Hospitalization)
  Sender: FDA-Public Use
  Company Number: US-AMAG PHARMACEUTICALS, INC.-AMAG201600702

PATIENT

DRUGS (3)
  1. PROMETRIUM [Concomitant]
     Active Substance: PROGESTERONE
     Dosage: 400 MG, UNK
  2. PENNSAID [Concomitant]
     Active Substance: DICLOFENAC SODIUM
     Dosage: UNK
     Route: 062
     Dates: start: 20160210
  3. MAKENA [Suspect]
     Active Substance: HYDROXYPROGESTERONE CAPROATE
     Indication: PRODUCT USED FOR UNKNOWN INDICATION
     Dosage: 250 MG, WEEKLY
     Route: 030
     Dates: start: 20160314

REACTIONS (1)
  - Cervical incompetence [Not Recovered/Not Resolved]

NARRATIVE: CASE EVENT DATE: 20160420
